FAERS Safety Report 15656733 (Version 1)
Quarter: 2018Q4

REPORT INFORMATION
  Report Type: Report from Study
  Country: US (occurrence: US)
  Receive Date: 20181126
  Receipt Date: 20181126
  Transmission Date: 20190205
  Serious: Yes (Disabling, Other)
  Sender: FDA-Public Use
  Company Number: US-SA-2016SA114236

PATIENT
  Age: 60 Year
  Sex: Male

DRUGS (2)
  1. BYETTA [Suspect]
     Active Substance: EXENATIDE
     Dosage: UNK UNK,UNK
     Route: 065
  2. INSULIN GLARGINE [Suspect]
     Active Substance: INSULIN GLARGINE
     Indication: TYPE 2 DIABETES MELLITUS
     Dosage: 32 DF,QD
     Route: 058
     Dates: start: 201211

REACTIONS (6)
  - Wrong product administered [Unknown]
  - Disability [Unknown]
  - Depressed mood [Not Recovered/Not Resolved]
  - Depression [Not Recovered/Not Resolved]
  - Post-traumatic stress disorder [Not Recovered/Not Resolved]
  - Anxiety [Not Recovered/Not Resolved]
